FAERS Safety Report 21950187 (Version 3)
Quarter: 2023Q2

REPORT INFORMATION
  Report Type: Spontaneous
  Country: US (occurrence: US)
  Receive Date: 20230203
  Receipt Date: 20230526
  Transmission Date: 20230722
  Serious: Yes (Hospitalization)
  Sender: FDA-Public Use
  Company Number: US-INSMED, INC.-2022-03353-US

PATIENT
  Age: 56 Year
  Sex: Female

DRUGS (2)
  1. ARIKAYCE [Suspect]
     Active Substance: AMIKACIN
     Indication: Mycobacterium abscessus infection
     Dosage: 590 MILLIGRAM, QD
     Route: 055
     Dates: start: 20221119, end: 202301
  2. ARIKAYCE [Suspect]
     Active Substance: AMIKACIN
     Dosage: 590 MILLIGRAM, QD
     Route: 055
     Dates: start: 2023

REACTIONS (4)
  - Iron deficiency anaemia [Unknown]
  - Dizziness [Recovered/Resolved]
  - Off label use [Unknown]
  - Therapy interrupted [Unknown]

NARRATIVE: CASE EVENT DATE: 20221101
